FAERS Safety Report 8481161 (Version 3)
Quarter: 2012Q4

REPORT INFORMATION
  Report Type: 
  Country: AU (occurrence: AU)
  Receive Date: 20120328
  Receipt Date: 20120920
  Transmission Date: 20130627
  Serious: Yes (Other)
  Sender: FDA-Public Use
  Company Number: AU-BRISTOL-MYERS SQUIBB COMPANY-16463267

PATIENT
  Age: 86 Year
  Sex: Male
  Weight: 74 kg

DRUGS (6)
  1. IPILIMUMAB [Suspect]
     Indication: METASTATIC MALIGNANT MELANOMA
     Dosage: 02Mar12:2+3inf,Wk1:50mgx1vial200mgx1,exp:Aug13Wk4:10Feb1250mgx1200mgx1Wk703Feb1250mgx1200mgx1;3 INF
     Route: 042
     Dates: start: 20120120
  2. ASPIRIN [Concomitant]
  3. NIFEDIPINE [Concomitant]
  4. DOXEPIN [Concomitant]
  5. OMEPRAZOLE [Concomitant]
  6. TAMSULOSIN [Concomitant]

REACTIONS (2)
  - Malignant neoplasm progression [Unknown]
  - Optic neuritis [Unknown]
